FAERS Safety Report 9324038 (Version 1)
Quarter: 2013Q2

REPORT INFORMATION
  Report Type: Spontaneous
  Country: US (occurrence: US)
  Receive Date: 20130603
  Receipt Date: 20130603
  Transmission Date: 20140414
  Serious: Yes (Other)
  Sender: FDA-Public Use
  Company Number: US-PFIZER INC-2013165764

PATIENT
  Age: 20 Year
  Sex: Female

DRUGS (3)
  1. HALOPERIDOL [Suspect]
     Dosage: UNK
  2. ACYCLOVIR [Concomitant]
     Indication: ENCEPHALITIS
     Dosage: UNK
  3. ACYCLOVIR [Concomitant]
     Indication: MENINGITIS

REACTIONS (1)
  - Teratoma [Unknown]
